FAERS Safety Report 5218267-9 (Version None)
Quarter: 2007Q1

REPORT INFORMATION
  Report Type: 
  Country: None (occurrence: None)
  Receive Date: 20070122
  Receipt Date: 20070122
  Transmission Date: 20070707
  Serious: Yes (Life-Threatening)
  Sender: FDA-Public Use
  Company Number: None

PATIENT
  Sex: Female
  Weight: 46 kg

DRUGS (9)
  1. IRINOTECAN HCL [Suspect]
     Indication: OESOPHAGEAL CARCINOMA
     Dosage: 85  IV
     Route: 042
     Dates: start: 20050923, end: 20051021
  2. CISPLATIN [Suspect]
     Indication: OESOPHAGEAL CARCINOMA
     Dosage: 30  IV
     Route: 042
     Dates: start: 20050923, end: 20051021
  3. CETUXIMAB (MG/M2); WK 1-9, WK 15-44 [Suspect]
     Indication: OESOPHAGEAL CARCINOMA
     Dosage: 250  IV
     Route: 042
     Dates: start: 20050916, end: 20051111
  4. XRT, D1-5, WK 2-7 [Suspect]
     Indication: OESOPHAGEAL CARCINOMA
     Dosage: 180CGY
     Dates: start: 20050919, end: 20051027
  5. ZOFRAN [Concomitant]
  6. IMODIUM [Concomitant]
  7. ATENOLOL [Concomitant]
  8. TRIAMTERENE [Concomitant]
  9. HYDROCHLOROTHIAZIDE [Concomitant]

REACTIONS (1)
  - EXERCISE ELECTROCARDIOGRAM ABNORMAL [None]
